FAERS Safety Report 9773077 (Version 3)
Quarter: 2014Q1

REPORT INFORMATION
  Report Type: Spontaneous
  Country: US (occurrence: US)
  Receive Date: 20131219
  Receipt Date: 20140107
  Transmission Date: 20141002
  Serious: No
  Sender: FDA-Public Use
  Company Number: US-PFIZER INC-2011012292

PATIENT
  Age: 60 Year
  Sex: Male
  Weight: 104 kg

DRUGS (19)
  1. GENOTROPIN [Suspect]
     Indication: HYPOPITUITARISM
     Dosage: 0.2 MG, 1X/DAY
     Route: 058
     Dates: start: 2010
  2. GENOTROPIN [Suspect]
     Dosage: 0.2 MG, 1X/DAY
     Route: 058
  3. CRESTOR [Concomitant]
     Indication: BLOOD CHOLESTEROL INCREASED
     Dosage: 40 MG, 1X/DAY
     Route: 048
  4. INDERAL-LA [Concomitant]
     Indication: MIGRAINE
     Dosage: 150 MG, 1X/DAY
     Route: 048
  5. NORVASC [Concomitant]
     Indication: MIGRAINE
     Dosage: 10 MG, 1X/DAY
     Route: 048
  6. NORVASC [Concomitant]
     Indication: HYPERTENSION
  7. SPIRONE [Concomitant]
     Indication: MIGRAINE
     Dosage: 30 MG, 1X/DAY
     Route: 048
  8. CORTEF [Concomitant]
     Indication: HORMONE REPLACEMENT THERAPY
     Dosage: 30 MG, 1X/DAY
     Route: 048
  9. SYNTHROID [Concomitant]
     Indication: THYROID DISORDER
     Dosage: 0.125 MG, 1X/DAY
     Route: 048
  10. ANDROGEL [Concomitant]
     Indication: HORMONE THERAPY
     Dosage: 7.5 G, 1X/DAY
  11. NASACORT [Concomitant]
     Indication: HYPERSENSITIVITY
     Dosage: UNK
     Route: 045
  12. DEPAKOTE [Concomitant]
     Indication: MIGRAINE
     Dosage: 750 MG, 1X/DAY
     Route: 048
  13. LORATADINE [Concomitant]
     Indication: HYPERSENSITIVITY
     Dosage: UNK
     Route: 048
  14. VERAPAMIL [Concomitant]
     Indication: HYPERTENSION
     Dosage: 180 MG, 1X/DAY
  15. VERAPAMIL [Concomitant]
     Indication: MIGRAINE
  16. RELPAX [Concomitant]
     Indication: MIGRAINE
     Dosage: UNK MG, 1X/DAY
  17. ZOLPIDEM TARTRATE [Concomitant]
     Indication: SLEEP DISORDER
     Dosage: 1 DF, 1X/DAY
     Route: 048
  18. TAMSULOSIN [Concomitant]
     Indication: MICTURITION DISORDER
     Dosage: 0.4 MG, 1X/DAY
     Route: 048
  19. CLONAZEPAM [Concomitant]
     Indication: RESTLESS LEGS SYNDROME
     Dosage: 0.2 MG, 1X/DAY
     Route: 048

REACTIONS (1)
  - Injection site bruising [Recovering/Resolving]
